FAERS Safety Report 8933117 (Version 2)
Quarter: 2012Q4

REPORT INFORMATION
  Report Type: 
  Country: JP (occurrence: JP)
  Receive Date: 20121128
  Receipt Date: 20121203
  Transmission Date: 20130627
  Serious: Yes (Hospitalization)
  Sender: FDA-Public Use
  Company Number: JP-VERTEX PHARMACEUTICAL INC.-2012-025125

PATIENT
  Age: 70 Year
  Sex: Male

DRUGS (6)
  1. TELAVIC [Suspect]
     Indication: CHRONIC HEPATITIS C
     Dosage: 1500 mg, qd
     Route: 048
     Dates: start: 20121006, end: 20121119
  2. REBETOL [Suspect]
     Indication: CHRONIC HEPATITIS C
     Dosage: 600 mg, qd
     Route: 048
     Dates: start: 20121006, end: 20121119
  3. PEGINTERFERON ALFA-2B [Suspect]
     Indication: CHRONIC HEPATITIS C
     Dosage: 1.5 ?g/kg,qw
     Route: 058
     Dates: start: 20121006, end: 20121112
  4. AMLODIN [Concomitant]
     Dosage: 5 mg, qd
     Route: 048
  5. GASTER [Concomitant]
     Dosage: 10 mg, qd
     Route: 048
  6. ALOSITOL [Concomitant]
     Dosage: UNK
     Dates: start: 20121006

REACTIONS (1)
  - Rash [Not Recovered/Not Resolved]
